FAERS Safety Report 14284122 (Version 8)
Quarter: 2018Q4

REPORT INFORMATION
  Report Type: Report from Study
  Country: ES (occurrence: ES)
  Receive Date: 20171214
  Receipt Date: 20181102
  Transmission Date: 20190204
  Serious: Yes (Hospitalization)
  Sender: FDA-Public Use
  Company Number: ES-EISAI MEDICAL RESEARCH-EC-2017-034001

PATIENT
  Age: 33 Year
  Sex: Female
  Weight: 79 kg

DRUGS (8)
  1. PRIMPERAN [Concomitant]
     Active Substance: METOCLOPRAMIDE HYDROCHLORIDE
  2. PQR309 [Suspect]
     Active Substance: BIMIRALISIB
     Route: 048
     Dates: start: 20171213, end: 20171228
  3. AMOXICILLIN/ CLAVULANIC [Concomitant]
  4. ERIBULIN [Suspect]
     Active Substance: ERIBULIN
     Route: 041
     Dates: start: 20171213, end: 20171220
  5. PARACETAMOL [Concomitant]
     Active Substance: ACETAMINOPHEN
  6. IBUPROFEN. [Concomitant]
     Active Substance: IBUPROFEN
  7. ERIBULIN [Suspect]
     Active Substance: ERIBULIN
     Indication: BREAST CANCER
     Route: 041
     Dates: start: 20171031, end: 20171105
  8. PQR309 [Suspect]
     Active Substance: BIMIRALISIB
     Indication: BREAST CANCER
     Route: 048
     Dates: start: 20171108, end: 20171205

REACTIONS (2)
  - Febrile neutropenia [Recovered/Resolved]
  - Radiculopathy [Recovered/Resolved with Sequelae]

NARRATIVE: CASE EVENT DATE: 20171205
